FAERS Safety Report 8268708-8 (Version None)
Quarter: 2012Q2

REPORT INFORMATION
  Report Type: 
  Country: None (occurrence: None)
  Receive Date: 20120409
  Receipt Date: 20120402
  Transmission Date: 20120825
  Serious: Yes (Hospitalization)
  Sender: FDA-Public Use
  Company Number: IE-FRI-1000029419

PATIENT
  Age: 80 Year
  Sex: Female

DRUGS (2)
  1. LEXAPRO [Suspect]
     Indication: DEPRESSION
  2. ANTIPSYCHOTIC DRUGS [Suspect]

REACTIONS (11)
  - BLOOD SODIUM DECREASED [None]
  - PLEURAL EFFUSION [None]
  - CONDITION AGGRAVATED [None]
  - CARDIAC FAILURE [None]
  - URINARY TRACT INFECTION [None]
  - FALL [None]
  - NO THERAPEUTIC RESPONSE [None]
  - FLUID INTAKE REDUCED [None]
  - PSYCHOTIC DISORDER [None]
  - APHAGIA [None]
  - GENERAL PHYSICAL HEALTH DETERIORATION [None]
